FAERS Safety Report 9754443 (Version 1)
Quarter: 2013Q4

REPORT INFORMATION
  Report Type: Spontaneous
  Country: BR (occurrence: BR)
  Receive Date: 20131213
  Receipt Date: 20131213
  Transmission Date: 20140711
  Serious: Yes (Other)
  Sender: FDA-Public Use
  Company Number: BR-009507513-1312BRA003956

PATIENT
  Age: 38 Year
  Sex: Female
  Weight: 61 kg

DRUGS (6)
  1. ORGALUTRAN [Suspect]
     Indication: ASSISTED FERTILISATION
     Dosage: UNK
     Route: 058
     Dates: start: 201210, end: 201210
  2. ORGALUTRAN [Suspect]
     Dosage: UNK
     Route: 058
     Dates: start: 201305, end: 201305
  3. ORGALUTRAN [Suspect]
     Dosage: UNK
     Route: 058
     Dates: start: 201311, end: 20131205
  4. PUREGON [Suspect]
     Indication: ASSISTED FERTILISATION
     Dosage: UNK
     Route: 058
     Dates: start: 201210, end: 20131205
  5. ASCORBIC ACID [Concomitant]
     Indication: VITAMIN SUPPLEMENTATION
     Dosage: 1 DF, QD
  6. FOLIC ACID (MATERFOLIC) [Concomitant]
     Indication: VITAMIN SUPPLEMENTATION
     Dosage: UNK
     Route: 048
     Dates: start: 2012

REACTIONS (4)
  - Abortion spontaneous [Unknown]
  - Drug ineffective [Recovered/Resolved]
  - Drug administration error [Unknown]
  - Product quality issue [Unknown]
